FAERS Safety Report 14588428 (Version 15)
Quarter: 2022Q1

REPORT INFORMATION
  Report Type: Report from Study
  Country: CA (occurrence: CA)
  Receive Date: 20180301
  Receipt Date: 20220228
  Transmission Date: 20220423
  Serious: Yes (Hospitalization, Other)
  Sender: FDA-Public Use
  Company Number: PHHY2017CA159357

PATIENT
  Age: 54 Year
  Sex: Female
  Weight: 86 kg

DRUGS (14)
  1. COSENTYX [Suspect]
     Active Substance: SECUKINUMAB
     Indication: Psoriatic arthropathy
     Dosage: 300 MG, QMO
     Route: 058
     Dates: start: 20171024
  2. COSENTYX [Suspect]
     Active Substance: SECUKINUMAB
     Dosage: 300 MG, QW
     Route: 058
     Dates: start: 20171031
  3. COSENTYX [Suspect]
     Active Substance: SECUKINUMAB
     Dosage: 300 MG, QW
     Route: 058
     Dates: start: 20171107
  4. COSENTYX [Suspect]
     Active Substance: SECUKINUMAB
     Dosage: 300 MG, QMO
     Route: 058
     Dates: start: 201711
  5. COSENTYX [Suspect]
     Active Substance: SECUKINUMAB
     Dosage: 300 MG, QMO
     Route: 058
     Dates: start: 20180321
  6. COSENTYX [Suspect]
     Active Substance: SECUKINUMAB
     Dosage: 300 MG, QMO
     Route: 058
     Dates: start: 201806
  7. COSENTYX [Suspect]
     Active Substance: SECUKINUMAB
     Dosage: 300 MG, QMO
     Route: 058
     Dates: start: 201907
  8. COSENTYX [Suspect]
     Active Substance: SECUKINUMAB
     Dosage: 300 MG, QMO
     Route: 058
     Dates: start: 20200122, end: 20210321
  9. COSENTYX [Suspect]
     Active Substance: SECUKINUMAB
     Dosage: 300 MG,QMO
     Route: 058
     Dates: start: 20171026, end: 20210321
  10. IBUPROFEN [Concomitant]
     Active Substance: IBUPROFEN
     Indication: Product used for unknown indication
     Dosage: UNK
     Route: 065
  11. NAPROXEN [Concomitant]
     Active Substance: NAPROXEN
     Indication: Product used for unknown indication
     Dosage: UNK
     Route: 065
  12. ARTHROTEC [Concomitant]
     Active Substance: DICLOFENAC SODIUM\MISOPROSTOL
     Indication: Product used for unknown indication
     Dosage: UNK
     Route: 065
     Dates: start: 201512
  13. LEUCOVORIN [Concomitant]
     Active Substance: LEUCOVORIN
     Indication: Product used for unknown indication
     Dosage: UNK
     Route: 065
     Dates: start: 201603
  14. SULFASALAZINE [Concomitant]
     Active Substance: SULFASALAZINE
     Indication: Product used for unknown indication
     Dosage: UNK UNK, BID
     Route: 065
     Dates: start: 201604

REACTIONS (39)
  - Heart rate decreased [Unknown]
  - Multiple sclerosis [Not Recovered/Not Resolved]
  - Hypoaesthesia [Unknown]
  - Akinesia [Unknown]
  - Urinary tract infection [Unknown]
  - Asthenia [Unknown]
  - Haemorrhage [Unknown]
  - Blood urine present [Unknown]
  - Psoriatic arthropathy [Unknown]
  - Musculoskeletal stiffness [Not Recovered/Not Resolved]
  - C-reactive protein increased [Not Recovered/Not Resolved]
  - Arthralgia [Not Recovered/Not Resolved]
  - Feeling abnormal [Recovering/Resolving]
  - Confusional state [Not Recovered/Not Resolved]
  - Fatigue [Unknown]
  - Pollakiuria [Unknown]
  - Urine odour abnormal [Unknown]
  - Chromaturia [Unknown]
  - Dysuria [Unknown]
  - Headache [Unknown]
  - Pruritus [Unknown]
  - Trigeminal neuralgia [Recovering/Resolving]
  - Neuralgia [Recovering/Resolving]
  - Electric shock sensation [Unknown]
  - Nasal inflammation [Unknown]
  - Sinus pain [Unknown]
  - Pain [Unknown]
  - Irritable bowel syndrome [Unknown]
  - Incontinence [Unknown]
  - Weight decreased [Not Recovered/Not Resolved]
  - Tendonitis [Unknown]
  - Peripheral swelling [Unknown]
  - General physical health deterioration [Unknown]
  - Cystitis [Unknown]
  - Influenza [Unknown]
  - Nasopharyngitis [Unknown]
  - Acute sinusitis [Recovering/Resolving]
  - Psoriasis [Not Recovered/Not Resolved]
  - Therapeutic response shortened [Unknown]

NARRATIVE: CASE EVENT DATE: 20171024
